FAERS Safety Report 6496692-6 (Version None)
Quarter: 2009Q4

REPORT INFORMATION
  Report Type: 
  Country: None (occurrence: None)
  Receive Date: 20091210
  Receipt Date: 20091125
  Transmission Date: 20100525
  Serious: Yes (Hospitalization)
  Sender: FDA-Public Use
  Company Number: AUR-APL-2009-01404

PATIENT
  Sex: Male

DRUGS (7)
  1. CITALOPRAM HYDROBROMIDE [Suspect]
     Indication: DEPRESSION
     Dosage: 20MG, DAILY, ORAL
     Route: 048
     Dates: start: 20070301, end: 20070301
  2. EPILIM CHRONOSPHERE [Suspect]
     Indication: DEPRESSION
     Dosage: 300MG, BID, ORAL
     Route: 048
     Dates: start: 20061101
  3. ASPRIN 300MG QD [Concomitant]
  4. DIGOXIN 250MCG QD [Concomitant]
  5. FUROSEMIDE [Concomitant]
  6. RAMIPRIL 10MG QD [Concomitant]
  7. CLINUTREN 1.5MG [Concomitant]

REACTIONS (2)
  - HYPONATRAEMIA [None]
  - MENTAL DISORDER [None]
